FAERS Safety Report 7972643-X (Version None)
Quarter: 2011Q4

REPORT INFORMATION
  Report Type: 
  Country: None (occurrence: None)
  Receive Date: 20111213
  Receipt Date: 20111208
  Transmission Date: 20120403
  Serious: Yes (Death, Other)
  Sender: FDA-Public Use
  Company Number: US-JNJFOC-20111008354

PATIENT
  Sex: Female

DRUGS (16)
  1. CITALOPRAM [Suspect]
     Route: 065
     Dates: start: 20091105
  2. MORPHINE [Concomitant]
     Route: 065
  3. TOPAMAX [Suspect]
     Route: 048
     Dates: start: 20100218
  4. NEXIUM [Concomitant]
     Route: 048
     Dates: start: 20100318
  5. DESYREL [Concomitant]
     Indication: SLEEP DISORDER
     Route: 065
     Dates: start: 20100504
  6. MAXALT [Concomitant]
     Route: 065
     Dates: start: 20100121
  7. TOPAMAX [Suspect]
     Indication: MIGRAINE PROPHYLAXIS
     Route: 048
     Dates: start: 20091105
  8. CITALOPRAM [Suspect]
     Route: 065
     Dates: start: 20100218
  9. METFORMIN HCL [Concomitant]
     Route: 065
     Dates: start: 20110203
  10. TOPAMAX [Suspect]
     Route: 048
  11. TOPAMAX [Suspect]
     Route: 048
     Dates: start: 20100504
  12. MAXALT [Concomitant]
     Route: 065
     Dates: start: 20110203
  13. RELPAX [Concomitant]
     Route: 065
  14. SINGULAIR [Concomitant]
     Route: 048
  15. CITALOPRAM [Suspect]
     Indication: DEPRESSION
     Route: 065
     Dates: start: 20100504
  16. ALLEGRA [Concomitant]
     Route: 048

REACTIONS (8)
  - HEADACHE [None]
  - UPPER-AIRWAY COUGH SYNDROME [None]
  - BLOOD PRESSURE INCREASED [None]
  - DEPRESSION [None]
  - HYPERSENSITIVITY [None]
  - ROAD TRAFFIC ACCIDENT [None]
  - DIABETES MELLITUS [None]
  - PSYCHIATRIC SYMPTOM [None]
